FAERS Safety Report 5305587-2 (Version None)
Quarter: 2007Q2

REPORT INFORMATION
  Report Type: 
  Country: None (occurrence: None)
  Receive Date: 20070424
  Receipt Date: 20070417
  Transmission Date: 20071010
  Serious: Yes (Other)
  Sender: FDA-Public Use
  Company Number: PHEH2007US03478

PATIENT
  Age: 70 Year
  Sex: Female

DRUGS (3)
  1. SORAFENIB [Concomitant]
  2. SUTENT [Concomitant]
  3. ZOMETA [Suspect]
     Indication: RENAL CANCER METASTATIC
     Dates: start: 20050601, end: 20070101

REACTIONS (4)
  - BONE DISORDER [None]
  - MOUTH ULCERATION [None]
  - OSTEONECROSIS [None]
  - TOOTH DISORDER [None]
